FAERS Safety Report 21818562 (Version 1)
Quarter: 2023Q1

REPORT INFORMATION
  Report Type: Spontaneous
  Country: IT (occurrence: None)
  Receive Date: 20230104
  Receipt Date: 20230104
  Transmission Date: 20230418
  Serious: Yes (Hospitalization)
  Sender: FDA-Public Use
  Company Number: 2022A418078

PATIENT
  Age: 40 Year
  Sex: Male

DRUGS (8)
  1. QUETIAPINE [Suspect]
     Active Substance: QUETIAPINE
     Dosage: 230 TABLETS OF QUETIAPINE 150 MG + 50 BLISTERS OF CITALOPRAM
     Route: 048
     Dates: start: 20220823, end: 20220823
  2. CITALOPRAM [Suspect]
     Active Substance: CITALOPRAM HYDROBROMIDE
     Dosage: 230 TABLETS OF QUETIAPINE 150 MG + 50 BLISTERS OF CITALOPRAM.
     Route: 048
     Dates: start: 20220823, end: 20220823
  3. BISOPROLOL [Concomitant]
     Active Substance: BISOPROLOL
     Dosage: BISOPROLOL 1.25 MG
     Route: 048
  4. FLURAZEPAM MONOHYDROCHLORIDE [Concomitant]
     Active Substance: FLURAZEPAM MONOHYDROCHLORIDE
     Route: 048
  5. DULOXETINE [Concomitant]
     Active Substance: DULOXETINE
     Dosage: DULOXETINE 60 MG.
  6. LYRICA [Concomitant]
     Active Substance: PREGABALIN
     Dosage: LYRICA 75 MG.
     Route: 048
  7. TAVOR [Concomitant]
     Dosage: TAVOR 2.5 MG.
     Route: 048
  8. LITHIUM SULFATE [Concomitant]
     Active Substance: LITHIUM SULFATE
     Dosage: RESILIENT 83 MG.

REACTIONS (3)
  - Coma [Recovered/Resolved]
  - Bezoar [Recovered/Resolved]
  - Intentional product misuse [Recovered/Resolved]

NARRATIVE: CASE EVENT DATE: 20220823
